FAERS Safety Report 7916898-6 (Version None)
Quarter: 2011Q4

REPORT INFORMATION
  Report Type: 
  Country: None (occurrence: None)
  Receive Date: 20111116
  Receipt Date: 20111102
  Transmission Date: 20120403
  Serious: No
  Sender: FDA-Public Use
  Company Number: US-B.I. PHARMACEUTICALS,INC./RIDGEFIELD-2011-BP-25613BP

PATIENT
  Sex: Female

DRUGS (3)
  1. SINGULAIR [Suspect]
     Indication: ASTHMA
  2. ADVAIR DISKUS 100/50 [Suspect]
     Indication: ASTHMA
  3. COMBIVENT [Suspect]
     Indication: ASTHMA

REACTIONS (1)
  - IRRITABILITY [None]
